FAERS Safety Report 7378974-9 (Version None)
Quarter: 2011Q1

REPORT INFORMATION
  Report Type: 
  Country: None (occurrence: None)
  Receive Date: 20110328
  Receipt Date: 20110315
  Transmission Date: 20110831
  Serious: Yes (Death)
  Sender: FDA-Public Use
  Company Number: US-ELI_LILLY_AND_COMPANY-US201102004310

PATIENT
  Sex: Female

DRUGS (8)
  1. CELEXA [Concomitant]
  2. METOPROLOL SUCCINATE [Concomitant]
  3. VESICARE [Concomitant]
  4. PLAVIX [Concomitant]
  5. LEVOTHYROXINE SODIUM [Concomitant]
  6. FORTEO [Suspect]
     Dosage: 20 UG, DAILY (1/D)
     Route: 058
     Dates: start: 20100118
  7. LISINOPRIL [Concomitant]
  8. LASIX [Concomitant]

REACTIONS (1)
  - PNEUMONIA [None]
